FAERS Safety Report 16715388 (Version 5)
Quarter: 2022Q2

REPORT INFORMATION
  Report Type: Spontaneous
  Country: US (occurrence: US)
  Receive Date: 20190819
  Receipt Date: 20220610
  Transmission Date: 20220721
  Serious: No
  Sender: FDA-Public Use
  Company Number: US-PFIZER INC-2018167921

PATIENT
  Age: 54 Year
  Sex: Female
  Weight: 60.771 kg

DRUGS (1)
  1. XELJANZ XR [Suspect]
     Active Substance: TOFACITINIB CITRATE
     Dosage: 11 MG, DAILY
     Route: 048

REACTIONS (6)
  - Therapy cessation [Unknown]
  - Illness [Unknown]
  - Sinus disorder [Unknown]
  - Hypersensitivity [Unknown]
  - Limb discomfort [Unknown]
  - Joint range of motion decreased [Unknown]
